FAERS Safety Report 6691914-0 (Version None)
Quarter: 2010Q2

REPORT INFORMATION
  Report Type: 
  Country: None (occurrence: None)
  Receive Date: 20100422
  Receipt Date: 20100205
  Transmission Date: 20101027
  Serious: No
  Sender: FDA-Public Use
  Company Number: US-ASTRAZENECA-2010SE05353

PATIENT
  Sex: Female
  Weight: 48.1 kg

DRUGS (6)
  1. TOPROL-XL [Suspect]
     Indication: CARDIAC DISORDER
     Route: 048
  2. AVAPRO [Concomitant]
     Indication: CARDIAC DISORDER
  3. NORVASC [Concomitant]
     Indication: CARDIAC DISORDER
  4. SYNTHROID [Concomitant]
  5. SINGULAIR [Concomitant]
     Indication: HYPERSENSITIVITY
  6. ZYRTEC [Concomitant]
     Indication: HYPERSENSITIVITY

REACTIONS (2)
  - DYSPNOEA [None]
  - MUSCULAR WEAKNESS [None]
